FAERS Safety Report 4695300-4 (Version None)
Quarter: 2005Q2

REPORT INFORMATION
  Report Type: 
  Country: None (occurrence: None)
  Receive Date: 20050126
  Receipt Date: 20050126
  Transmission Date: 20051028
  Serious: Yes (Other)
  Sender: FDA-Public Use
  Company Number: None

PATIENT
  Sex: Female
  Weight: 90.7194 kg

DRUGS (2)
  1. COUMADIN GENERIC (WARFARIN) [Suspect]
     Indication: ATRIAL FIBRILLATION
     Dosage: VARIABLE DOSE
     Dates: start: 19990101, end: 20000101
  2. COUMADIN GENERIC (WARFARIN) [Suspect]
     Indication: CEREBROVASCULAR ACCIDENT
     Dosage: VARIABLE DOSE
     Dates: start: 19990101, end: 20000101

REACTIONS (2)
  - DRUG HYPERSENSITIVITY [None]
  - PHARMACEUTICAL PRODUCT COMPLAINT [None]
